FAERS Safety Report 6876028-9 (Version None)
Quarter: 2010Q3

REPORT INFORMATION
  Report Type: 
  Country: None (occurrence: None)
  Receive Date: 20100727
  Receipt Date: 20071112
  Transmission Date: 20110219
  Serious: Yes (Hospitalization, Other)
  Sender: FDA-Public Use
  Company Number: US-PFIZER INC-2006147726

PATIENT
  Sex: Male
  Weight: 81.6 kg

DRUGS (5)
  1. CELEBREX [Suspect]
     Indication: PAIN
     Route: 048
     Dates: start: 20010901
  2. VIOXX [Suspect]
     Indication: OSTEOARTHRITIS
     Route: 048
     Dates: start: 20010129, end: 20010901
  3. AMITRIPTYLINE HYDROCHLORIDE [Concomitant]
     Indication: DEPRESSION
     Dates: start: 20000101, end: 20070101
  4. LEXAPRO [Concomitant]
     Indication: ANXIETY DISORDER
     Dates: start: 20000101, end: 20070101
  5. SEROQUEL [Concomitant]
     Dates: start: 20000101, end: 20070101

REACTIONS (4)
  - ANXIETY [None]
  - CEREBROVASCULAR ACCIDENT [None]
  - DEPRESSION [None]
  - PULMONARY EMBOLISM [None]
